FAERS Safety Report 8553451-8 (Version None)
Quarter: 2012Q3

REPORT INFORMATION
  Report Type: 
  Country: None (occurrence: None)
  Receive Date: 20120725
  Receipt Date: 20120725
  Transmission Date: 20120928
  Serious: No
  Sender: FDA-Public Use
  Company Number: None

PATIENT
  Age: 82 Year
  Sex: Male
  Weight: 92.5338 kg

DRUGS (2)
  1. MORPHINE SULFATE [Suspect]
     Indication: PAIN
     Dosage: 10 MG ONCE IV
     Route: 042
     Dates: start: 20111028, end: 20111028
  2. FENTANYL CITRATE [Suspect]
     Indication: PAIN
     Dosage: 50 MCG ONCE IV
     Route: 042
     Dates: start: 20111028, end: 20111028

REACTIONS (2)
  - FALL [None]
  - FEMUR FRACTURE [None]
